FAERS Safety Report 13815387 (Version 2)
Quarter: 2017Q3

REPORT INFORMATION
  Report Type: Report from Study
  Country: None (occurrence: US)
  Receive Date: 20170731
  Receipt Date: 20170814
  Transmission Date: 20171127
  Serious: No
  Sender: FDA-Public Use
  Company Number: US-ABBVIE-17P-163-2055075-00

PATIENT

DRUGS (6)
  1. VENETOCLAX. [Suspect]
     Active Substance: VENETOCLAX
     Indication: B-CELL LYMPHOMA
     Dosage: ON DAY 1-28
     Route: 048
     Dates: start: 20170323
  2. LENALIDOMIDE [Concomitant]
     Active Substance: LENALIDOMIDE
     Dosage: ON DAY 1-28
     Route: 048
     Dates: start: 20170418
  3. VENETOCLAX. [Suspect]
     Active Substance: VENETOCLAX
     Dosage: ON DAY 1-28
     Route: 048
     Dates: start: 20170418
  4. LENALIDOMIDE [Concomitant]
     Active Substance: LENALIDOMIDE
     Indication: B-CELL LYMPHOMA
     Dosage: ON DAY 1-21
     Route: 048
     Dates: start: 20170323
  5. OBINUTUZUMAB. [Concomitant]
     Active Substance: OBINUTUZUMAB
     Indication: B-CELL LYMPHOMA
     Dosage: ON DAYS 1, 8, AND 15 OF COURSE 1 AND DAY 1 OF COURSES 2-6.
     Route: 042
     Dates: start: 20170323
  6. OBINUTUZUMAB. [Concomitant]
     Active Substance: OBINUTUZUMAB
     Dosage: ON DAYS 1, 8, AND 15 OF COURSE 1 AND DAY 1 OF COURSES 2-6.
     Route: 042
     Dates: start: 20170418

REACTIONS (2)
  - Lymphocyte count decreased [Recovered/Resolved]
  - Neutrophil count decreased [Recovered/Resolved]

NARRATIVE: CASE EVENT DATE: 20170323
